FAERS Safety Report 12296749 (Version 2)
Quarter: 2016Q2

REPORT INFORMATION
  Report Type: Report from Study
  Country: CO (occurrence: CO)
  Receive Date: 20160422
  Receipt Date: 20160504
  Transmission Date: 20160815
  Serious: Yes (Hospitalization, Disabling, Other)
  Sender: FDA-Public Use
  Company Number: CO-AMGEN-COLSL2016049950

PATIENT
  Age: 40 Year
  Sex: Female
  Weight: 32 kg

DRUGS (1)
  1. MIMPARA [Suspect]
     Active Substance: CINACALCET HYDROCHLORIDE
     Indication: HYPERPARATHYROIDISM SECONDARY
     Dosage: UNK
     Route: 065
     Dates: start: 20150922

REACTIONS (4)
  - Seizure [Recovered/Resolved]
  - Thrombosis [Recovered/Resolved]
  - Hypertension [Unknown]
  - Asthenia [Not Recovered/Not Resolved]

NARRATIVE: CASE EVENT DATE: 2016
